FAERS Safety Report 21065345 (Version 2)
Quarter: 2022Q4

REPORT INFORMATION
  Report Type: Spontaneous
  Country: PL (occurrence: PL)
  Receive Date: 20220711
  Receipt Date: 20221123
  Transmission Date: 20230112
  Serious: Yes (Other)
  Sender: FDA-Public Use
  Company Number: PL-AMGEN-POLSP2022108503

PATIENT
  Age: 63 Year
  Sex: Female

DRUGS (5)
  1. REVLIMID [Suspect]
     Active Substance: LENALIDOMIDE
     Indication: Plasma cell myeloma
     Dosage: UNK
     Route: 065
     Dates: start: 20201117
  2. DEXAMETHASONE [Suspect]
     Active Substance: DEXAMETHASONE
     Indication: Plasma cell myeloma
     Route: 065
     Dates: start: 20201117
  3. KYPROLIS [Suspect]
     Active Substance: CARFILZOMIB
     Indication: Plasma cell myeloma
     Dosage: UNK
     Route: 065
     Dates: start: 20201117
  4. SARS-CoV-2 vaccine [Concomitant]
     Indication: Product used for unknown indication
     Dosage: 3 DOSES
     Route: 065
  5. MELPHALAN [Concomitant]
     Active Substance: MELPHALAN
     Indication: Transplant
     Route: 065

REACTIONS (8)
  - Diarrhoea [Unknown]
  - Hyponatraemia [Unknown]
  - Weight decreased [Unknown]
  - Stomatitis [Unknown]
  - Hypokalaemia [Unknown]
  - Blood pressure increased [Recovering/Resolving]
  - Herpes zoster [Unknown]
  - Cytokine increased [Unknown]
